FAERS Safety Report 11387240 (Version 2)
Quarter: 2015Q3

REPORT INFORMATION
  Report Type: Spontaneous
  Country: US (occurrence: US)
  Receive Date: 20150817
  Receipt Date: 20150916
  Transmission Date: 20151125
  Serious: Yes (Hospitalization)
  Sender: FDA-Public Use
  Company Number: US-BEH-2015052962

PATIENT
  Age: 10 Year
  Sex: Male
  Weight: 26.3 kg

DRUGS (22)
  1. ALBUTEROL. [Concomitant]
     Active Substance: ALBUTEROL
     Indication: COUGH
     Dosage: INHALE 2 PUFFS INTO LUNGS EVERY 4 HOURS
     Route: 055
  2. FLUTICASONE SALMETEROL [Concomitant]
     Active Substance: FLUTICASONE PROPIONATE\SALMETEROL XINAFOATE
     Dosage: 2 PUFFS  IN LUNGS 2 TIMES DAILY
     Route: 055
  3. HIZENTRA [Suspect]
     Active Substance: HUMAN IMMUNOGLOBULIN G
     Indication: IMMUNODEFICIENCY
     Dosage: 4 GM WEEKLY (3 SITES);16-JUL-2015 INFUSION DATE;RUN OVER 30 MINUTES
     Route: 058
  4. HIZENTRA [Suspect]
     Active Substance: HUMAN IMMUNOGLOBULIN G
     Indication: HYPOGAMMAGLOBULINAEMIA
     Dosage: 4 GM WEEKLY (3 SITES); START 20-NOV-2010 TO 02-AUG-2015
     Route: 058
  5. IBUPROFEN. [Concomitant]
     Active Substance: IBUPROFEN
     Indication: PAIN
     Dosage: 100 MG/5 ML SUSPENSION; 15 ML EVERY 6 HOURS BY MOUTH
  6. MONTELUKAST [Concomitant]
     Active Substance: MONTELUKAST SODIUM
     Dosage: 5 MG DAILY PER G TUBE
  7. METHYLPHENIDATE HYDROCHLORIDE. [Concomitant]
     Active Substance: METHYLPHENIDATE HYDROCHLORIDE
     Dosage: 225 MG/5ML; 30 MG PER GASTRIC TUBE DAILY
  8. ALBUTEROL. [Concomitant]
     Active Substance: ALBUTEROL
     Indication: WHEEZING
     Dosage: INHALE 2 PUFFS INTO LUNGS EVERY 4 HOURS
     Route: 055
  9. PROBIOTIC [Concomitant]
     Active Substance: PROBIOTICS NOS
     Dosage: DAILY
     Route: 048
  10. POLYETHYLENE GLYCOL [Concomitant]
     Active Substance: POLYETHYLENE GLYCOLS
     Dosage: G TUBE
  11. ALBUTEROL. [Concomitant]
     Active Substance: ALBUTEROL
     Indication: WHEEZING
     Dosage: 3 ML VIA NEBULIZER EVERY 4 HOURS AS NEEDED
  12. ALBUTEROL. [Concomitant]
     Active Substance: ALBUTEROL
     Indication: DYSPNOEA
     Dosage: 3 ML VIA NEBULIZER EVERY 4 HOURS AS NEEDED
  13. ALBUTEROL. [Concomitant]
     Active Substance: ALBUTEROL
     Indication: DYSPNOEA
     Dosage: INHALE 2 PUFFS INTO LUNGS EVERY 4 HOURS
     Route: 055
  14. ALBUTEROL. [Concomitant]
     Active Substance: ALBUTEROL
     Dosage: 2 PUFFS INTO LUNGS EVERY 12 HOURS
     Route: 055
  15. OXYGEN. [Concomitant]
     Active Substance: OXYGEN
     Dosage: 0.5 -3 L/MIN NIGHTLY
     Route: 055
  16. PREDNISOLONE. [Concomitant]
     Active Substance: PREDNISOLONE
     Indication: ASTHMA
     Dosage: 15 MG/5 ML SOLUTION; 20 ML PER G TUBE DAILY (TAKE FOR 5 DAYS FOR ASTHMA FLARES
  17. TERBINAFINE. [Concomitant]
     Active Substance: TERBINAFINE
     Indication: ONYCHOMYCOSIS
     Dosage: 250 MG  PER G TUBE DAILY
  18. EPINEPHRINE. [Concomitant]
     Active Substance: EPINEPHRINE
  19. ZYRTEC [Concomitant]
     Active Substance: CETIRIZINE HYDROCHLORIDE
     Dosage: 5 MG/5 ML ;10 ML PER G TUBE DAILY
  20. AZITHROMYCIN [Concomitant]
     Active Substance: AZITHROMYCIN ANHYDROUS
     Dosage: 7.5 MLS ORALLY ON DAY1, THEN 4 MLS DAILY ON DAYS 2-5
  21. FLUTICASONE [Concomitant]
     Active Substance: FLUTICASONE\FLUTICASONE PROPIONATE
     Indication: MULTIPLE ALLERGIES
     Dosage: 1 SPRAY EACH NOSTRIL DAILY AS NEEDED
     Route: 045
  22. ERYTHROMYCIN. [Concomitant]
     Active Substance: ERYTHROMYCIN
     Dosage: 4 TIMES DAILY VIA G TUBE

REACTIONS (12)
  - Brain injury [Not Recovered/Not Resolved]
  - Pyloric stenosis [Recovered/Resolved]
  - Intestinal obstruction [Unknown]
  - Cerebrovascular accident [Unknown]
  - Anaemia [Recovered/Resolved]
  - Brain oedema [Unknown]
  - Gastrointestinal haemorrhage [Recovered/Resolved]
  - Hypovolaemic shock [Unknown]
  - Duodenal ulcer haemorrhage [Unknown]
  - Hemiparesis [Unknown]
  - Embolic stroke [Unknown]
  - Pallor [Recovered/Resolved]

NARRATIVE: CASE EVENT DATE: 201507
